FAERS Safety Report 22088099 (Version 1)
Quarter: 2023Q1

REPORT INFORMATION
  Report Type: Spontaneous
  Country: US (occurrence: None)
  Receive Date: 20230313
  Receipt Date: 20230313
  Transmission Date: 20230417
  Serious: No
  Sender: FDA-Public Use
  Company Number: 2023A059900

PATIENT

DRUGS (1)
  1. PRILOSEC OTC [Suspect]
     Active Substance: OMEPRAZOLE MAGNESIUM
     Indication: Dyspepsia
     Dosage: TAKING YOUR PRODUCT FOR ABOUT TWO MONTHS
     Route: 048

REACTIONS (2)
  - Arthralgia [Unknown]
  - Incorrect product administration duration [Unknown]
